FAERS Safety Report 5626821-5 (Version None)
Quarter: 2008Q1

REPORT INFORMATION
  Report Type: 
  Country: None (occurrence: None)
  Receive Date: 20080212
  Receipt Date: 20080127
  Transmission Date: 20080703
  Serious: Yes (Other)
  Sender: FDA-Public Use
  Company Number: CHPA2008US01668

PATIENT
  Age: 14 Year
  Sex: Female

DRUGS (1)
  1. EXCEDRIN EXTRA STRENGTH (NCH)(CAFFEINE CITRATE, ACETYLSALICYLIC ACID, [Suspect]
     Dosage: 12 DF, ONCE/SINGLE, ORAL
     Route: 048

REACTIONS (2)
  - HEART RATE INCREASED [None]
  - OVERDOSE [None]
